FAERS Safety Report 10182275 (Version 1)
Quarter: 2014Q2

REPORT INFORMATION
  Report Type: Spontaneous
  Country: SE (occurrence: SE)
  Receive Date: 20140520
  Receipt Date: 20140520
  Transmission Date: 20141212
  Serious: Yes (Other)
  Sender: FDA-Public Use
  Company Number: SE-ORION CORPORATION ORION PHARMA-14_00000850

PATIENT
  Age: 75 Year
  Sex: Female

DRUGS (6)
  1. COMTESS [Suspect]
     Route: 065
     Dates: start: 2014
  2. AZILECT [Concomitant]
     Dosage: STRENGTH: 1 MG
     Route: 065
  3. MADOPARK QUICK MITE [Concomitant]
     Route: 065
  4. MADOPARK [Concomitant]
     Route: 065
  5. SINEMET [Concomitant]
     Route: 065
  6. NEUPRO [Concomitant]
     Route: 065

REACTIONS (5)
  - Nightmare [Unknown]
  - Hallucination, visual [Unknown]
  - Constipation [Unknown]
  - Abdominal pain [Unknown]
  - Musculoskeletal stiffness [Unknown]
